FAERS Safety Report 18120937 (Version 2)
Quarter: 2020Q3

REPORT INFORMATION
  Report Type: Spontaneous
  Country: US (occurrence: US)
  Receive Date: 20200806
  Receipt Date: 20200819
  Transmission Date: 20201103
  Serious: Yes (Hospitalization, Other)
  Sender: FDA-Public Use
  Company Number: US-ACTELION-A-US2020-207892

PATIENT
  Sex: Female
  Weight: 103.4 kg

DRUGS (4)
  1. OPSUMIT [Suspect]
     Active Substance: MACITENTAN
     Indication: PULMONARY ARTERIAL HYPERTENSION
     Dosage: 10 MG, QD
     Route: 048
     Dates: start: 20200617
  2. VELETRI [Suspect]
     Active Substance: EPOPROSTENOL
     Indication: PULMONARY ARTERIAL HYPERTENSION
     Dosage: 34.52 NG/KG, PER MIN
     Route: 042
  3. AMLODIPINE [Concomitant]
     Active Substance: AMLODIPINE BESYLATE
  4. ADCIRCA [Concomitant]
     Active Substance: TADALAFIL

REACTIONS (13)
  - Dyskinesia [Unknown]
  - Catheter site extravasation [Unknown]
  - Incoherent [Unknown]
  - Catheter site irritation [Unknown]
  - Spinal compression fracture [Unknown]
  - Ankle fracture [Unknown]
  - Pain in extremity [Recovering/Resolving]
  - Interstitial lung disease [Unknown]
  - Catheter site erythema [Unknown]
  - Hypoxia [Unknown]
  - Catheter site discolouration [Unknown]
  - Pneumonia [Not Recovered/Not Resolved]
  - Fall [Unknown]
